FAERS Safety Report 12631695 (Version 2)
Quarter: 2016Q3

REPORT INFORMATION
  Report Type: Spontaneous
  Country: US (occurrence: US)
  Receive Date: 20160808
  Receipt Date: 20160808
  Transmission Date: 20161109
  Serious: No
  Sender: FDA-Public Use
  Company Number: US-BEH-2015055361

PATIENT
  Sex: Male
  Weight: 97 kg

DRUGS (20)
  1. SINGULAIR [Concomitant]
     Active Substance: MONTELUKAST SODIUM
  2. COLCRYS [Concomitant]
     Active Substance: COLCHICINE
  3. HIZENTRA [Suspect]
     Active Substance: HUMAN IMMUNOGLOBULIN G
     Indication: IMMUNODEFICIENCY COMMON VARIABLE
     Dosage: 4GM 20ML VIAL
     Route: 058
  4. CHILDRENS ASPIRIN [Concomitant]
     Active Substance: ASPIRIN
  5. GABAPENTIN. [Concomitant]
     Active Substance: GABAPENTIN
  6. ZETIA [Concomitant]
     Active Substance: EZETIMIBE
  7. ADVAIR HFA [Concomitant]
     Active Substance: FLUTICASONE PROPIONATE\SALMETEROL XINAFOATE
  8. ULORIC [Concomitant]
     Active Substance: FEBUXOSTAT
  9. EFFIENT [Concomitant]
     Active Substance: PRASUGREL HYDROCHLORIDE
  10. LORATADINE. [Concomitant]
     Active Substance: LORATADINE
  11. AMITRIPTYLINE [Concomitant]
     Active Substance: AMITRIPTYLINE
  12. METOPROLOL. [Concomitant]
     Active Substance: METOPROLOL
  13. LISINOPRIL. [Concomitant]
     Active Substance: LISINOPRIL
  14. L-M-X [Concomitant]
  15. CENTRUM SILVER [Concomitant]
     Active Substance: MINERALS\VITAMINS
  16. AFRIN [Concomitant]
     Active Substance: OXYMETAZOLINE
  17. NEILMED SINUS RINSE [Concomitant]
     Active Substance: SODIUM BICARBONATE\SODIUM CHLORIDE
  18. DIPHENHYDRAMINE. [Concomitant]
     Active Substance: DIPHENHYDRAMINE
  19. EPIPEN [Concomitant]
     Active Substance: EPINEPHRINE
  20. SIMVASTATIN. [Concomitant]
     Active Substance: SIMVASTATIN

REACTIONS (1)
  - Infusion site rash [Unknown]
